FAERS Safety Report 14327504 (Version 1)
Quarter: 2017Q4

REPORT INFORMATION
  Report Type: Spontaneous
  Country: IT (occurrence: IT)
  Receive Date: 20171227
  Receipt Date: 20171227
  Transmission Date: 20180321
  Serious: Yes (Hospitalization, Other)
  Sender: FDA-Public Use
  Company Number: IT-AUROBINDO-AUR-APL-2017-43804

PATIENT
  Age: 67 Year
  Sex: Female
  Weight: 73 kg

DRUGS (10)
  1. ALPRAZOLAM. [Suspect]
     Active Substance: ALPRAZOLAM
     Indication: PRODUCT USED FOR UNKNOWN INDICATION
     Dosage: UNK ()
     Route: 065
  2. COUMADIN [Suspect]
     Active Substance: WARFARIN SODIUM
     Indication: ATRIAL FIBRILLATION
     Dosage: UNK ()
     Route: 065
  3. LEVOLEUCOVORIN                     /06682101/ [Concomitant]
     Active Substance: LEVOLEUCOVORIN
     Indication: ADENOCARCINOMA OF COLON
  4. TRIATEC                            /00116401/ [Concomitant]
     Active Substance: ACETAMINOPHEN\CODEINE PHOSPHATE
     Indication: PRODUCT USED FOR UNKNOWN INDICATION
     Dosage: UNK ()
     Route: 065
  5. FLUOROURACIL. [Suspect]
     Active Substance: FLUOROURACIL
     Indication: ADENOCARCINOMA OF COLON
     Dosage: CYCLICAL
     Route: 040
     Dates: start: 20170727, end: 20170901
  6. LEVOLEUCOVORIN                     /06682101/ [Concomitant]
     Active Substance: LEVOLEUCOVORIN
  7. CETUXIMAB. [Suspect]
     Active Substance: CETUXIMAB
     Indication: ADENOCARCINOMA OF COLON
     Dosage: 500 MG, CYCLICAL
     Route: 042
     Dates: start: 20170727
  8. FLUOROURACIL. [Suspect]
     Active Substance: FLUOROURACIL
     Dosage: 540 MG, CYCLICAL
     Route: 040
     Dates: start: 20170727, end: 20170901
  9. LANOXIN [Suspect]
     Active Substance: DIGOXIN
     Indication: ATRIAL FIBRILLATION
     Dosage: UNK ()
     Route: 065
  10. IRINOTECAN [Suspect]
     Active Substance: IRINOTECAN
     Indication: ADENOCARCINOMA OF COLON
     Dosage: 200 MG, CYCLICAL
     Route: 042
     Dates: start: 20170727, end: 20170901

REACTIONS (9)
  - Stomatitis [Recovering/Resolving]
  - International normalised ratio increased [Unknown]
  - Syncope [Unknown]
  - Asthenia [Recovering/Resolving]
  - Vomiting [Unknown]
  - Decreased appetite [Unknown]
  - Diarrhoea [Recovering/Resolving]
  - Accidental overdose [Unknown]
  - Toxicity to various agents [Unknown]

NARRATIVE: CASE EVENT DATE: 20170901
